FAERS Safety Report 8059354-X (Version None)
Quarter: 2012Q1

REPORT INFORMATION
  Report Type: 
  Country: None (occurrence: None)
  Receive Date: 20120120
  Receipt Date: 20120120
  Transmission Date: 20120608
  Serious: Yes (Hospitalization)
  Sender: FDA-Public Use
  Company Number: None

PATIENT
  Age: 84 Year
  Sex: Male
  Weight: 80 kg

DRUGS (12)
  1. FISH OIL-DHA-EPA -FISH OIL [Concomitant]
     Route: 048
  2. ZESTRIL [Concomitant]
     Route: 048
  3. COREG [Concomitant]
     Route: 048
  4. SENNA [Concomitant]
     Route: 048
  5. ENSURE [Concomitant]
     Route: 048
  6. PRINIVIL [Concomitant]
     Route: 048
  7. PRADAXA [Suspect]
     Indication: ATRIAL FIBRILLATION
     Dosage: 150MG
     Route: 048
     Dates: start: 20110915, end: 20111020
  8. ASPIRIN [Concomitant]
     Route: 048
  9. CALCIUM CARBONATE [Concomitant]
  10. COLACE [Concomitant]
     Route: 048
  11. LIPITOR [Concomitant]
     Route: 048
  12. LASIX [Concomitant]
     Route: 048

REACTIONS (1)
  - GASTROINTESTINAL HAEMORRHAGE [None]
